FAERS Safety Report 5190772-3 (Version None)
Quarter: 2006Q4

REPORT INFORMATION
  Report Type: 
  Country: None (occurrence: None)
  Receive Date: 20061222
  Receipt Date: 20061218
  Transmission Date: 20070319
  Serious: Yes (Hospitalization)
  Sender: FDA-Public Use
  Company Number: FR-GILEAD-2006-0010864

PATIENT
  Sex: Male
  Weight: 46 kg

DRUGS (6)
  1. TRUVADA [Suspect]
     Indication: HIV INFECTION
     Route: 048
     Dates: start: 20061122
  2. PYRAZINAMIDE [Suspect]
  3. RIFATER [Suspect]
     Indication: TUBERCULOSIS
     Route: 048
     Dates: start: 20061008, end: 20061206
  4. SUSTIVA [Concomitant]
     Indication: HIV INFECTION
     Route: 048
     Dates: start: 20061122
  5. DEXAMBUTHOL [Concomitant]
     Indication: TUBERCULOSIS
     Route: 048
     Dates: start: 20061008
  6. RIFINAH [Concomitant]
     Route: 048
     Dates: start: 20061207

REACTIONS (2)
  - IMMUNE RECONSTITUTION SYNDROME [None]
  - RENAL FAILURE [None]
